FAERS Safety Report 20984829 (Version 1)
Quarter: 2022Q2

REPORT INFORMATION
  Report Type: Spontaneous
  Country: US (occurrence: None)
  Receive Date: 20220621
  Receipt Date: 20220621
  Transmission Date: 20220721
  Serious: No
  Sender: FDA-Public Use
  Company Number: US-ROCHE-2879336

PATIENT
  Sex: Female

DRUGS (3)
  1. XELODA [Suspect]
     Active Substance: CAPECITABINE
     Indication: Appendix cancer
     Dosage: TAKE 4 TABLETS BY MOUTH EVNRY MORNING AND EVERY EVENING TAKE 30 MINS AFTER MEAL
     Route: 048
     Dates: start: 20210727
  2. XELODA [Suspect]
     Active Substance: CAPECITABINE
     Indication: Appendix cancer
  3. COMPAZINE [Concomitant]
     Active Substance: PROCHLORPERAZINE MALEATE

REACTIONS (2)
  - Off label use [Unknown]
  - No adverse event [Unknown]
